FAERS Safety Report 11796148 (Version 10)
Quarter: 2016Q2

REPORT INFORMATION
  Report Type: Report from Study
  Country: CA (occurrence: CA)
  Receive Date: 20151203
  Receipt Date: 20160518
  Transmission Date: 20160815
  Serious: Yes (Other)
  Sender: FDA-Public Use
  Company Number: CA-AEGERION PHARMACEUTICAL INC.-AEGR002177

PATIENT
  Age: 35 Year
  Sex: Male

DRUGS (3)
  1. JUXTAPID [Suspect]
     Active Substance: LOMITAPIDE MESYLATE
     Dosage: 10 MG, UNK
     Route: 048
     Dates: start: 20150217, end: 20150413
  2. JUXTAPID [Suspect]
     Active Substance: LOMITAPIDE MESYLATE
     Dosage: 5 MG, QD
     Route: 048
     Dates: start: 20150727
  3. JUXTAPID [Suspect]
     Active Substance: LOMITAPIDE MESYLATE
     Indication: PRODUCT USED FOR UNKNOWN INDICATION
     Dosage: 5 MG, QD
     Route: 048
     Dates: start: 20141128

REACTIONS (13)
  - Arterial occlusive disease [Unknown]
  - Liver function test increased [Recovered/Resolved]
  - Treatment noncompliance [Unknown]
  - Therapy cessation [Recovered/Resolved]
  - Asthenia [Unknown]
  - Volume blood increased [Unknown]
  - Blood creatine phosphokinase increased [Unknown]
  - Angina pectoris [Unknown]
  - Arthralgia [Unknown]
  - Product used for unknown indication [Unknown]
  - Alanine aminotransferase increased [Recovered/Resolved]
  - Xanthoma [Recovering/Resolving]
  - Drug dose omission [Recovered/Resolved]

NARRATIVE: CASE EVENT DATE: 20150413
